FAERS Safety Report 5007134-1 (Version None)
Quarter: 2006Q2

REPORT INFORMATION
  Report Type: 
  Country: None (occurrence: None)
  Receive Date: 20060519
  Receipt Date: 20060515
  Transmission Date: 20061013
  Serious: Yes (Other)
  Sender: FDA-Public Use
  Company Number: DK-MERCK-0605DNK00006

PATIENT
  Age: 58 Year
  Sex: Female

DRUGS (7)
  1. SINGULAIR [Suspect]
     Indication: ASTHMA
     Route: 048
     Dates: start: 20060214, end: 20060222
  2. SINGULAIR [Suspect]
     Indication: RHINITIS ALLERGIC
     Route: 048
     Dates: start: 20060214, end: 20060222
  3. BUDESONIDE AND FORMOTEROL FUMARATE [Concomitant]
     Route: 065
  4. TERBUTALINE SULFATE [Concomitant]
     Route: 065
  5. FORMOTEROL FUMARATE [Concomitant]
     Route: 065
  6. BENDROFLUMETHIAZIDE AND POTASSIUM CHLORIDE [Concomitant]
     Route: 065
  7. CHONDROITIN SULFATE SODIUM AND DIMETHYL SULFONE AND GLUCOSAMINE [Concomitant]
     Route: 065

REACTIONS (1)
  - VASCULAR RUPTURE [None]
